FAERS Safety Report 7124371-0 (Version None)
Quarter: 2010Q4

REPORT INFORMATION
  Report Type: 
  Country: None (occurrence: None)
  Receive Date: 20101126
  Receipt Date: 20101123
  Transmission Date: 20110411
  Serious: Yes (Death, Other)
  Sender: FDA-Public Use
  Company Number: PHHY2010US79918

PATIENT
  Sex: Male

DRUGS (1)
  1. EXELON [Suspect]
     Dosage: 1 DF, QD
     Route: 062
     Dates: start: 20101119

REACTIONS (3)
  - DEATH [None]
  - FALL [None]
  - RENAL FAILURE [None]
